FAERS Safety Report 24309035 (Version 2)
Quarter: 2024Q4

REPORT INFORMATION
  Report Type: Spontaneous
  Country: JP (occurrence: JP)
  Receive Date: 20240911
  Receipt Date: 20241108
  Transmission Date: 20250115
  Serious: Yes (Death)
  Sender: PFIZER
  Company Number: JP-PFIZER INC-PV202400119063

PATIENT
  Age: 9 Decade

DRUGS (1)
  1. BESPONSA [Suspect]
     Active Substance: INOTUZUMAB OZOGAMICIN
     Indication: Acute lymphocytic leukaemia
     Route: 041

REACTIONS (1)
  - Hepatic failure [Fatal]
